FAERS Safety Report 5274719-7 (Version None)
Quarter: 2007Q1

REPORT INFORMATION
  Report Type: 
  Country: None (occurrence: None)
  Receive Date: 20070320
  Receipt Date: 20070312
  Transmission Date: 20070707
  Serious: Yes (Death, Hospitalization)
  Sender: FDA-Public Use
  Company Number: 163-21880-07020768

PATIENT
  Age: 73 Year
  Sex: Male

DRUGS (10)
  1. REVLIMID [Suspect]
     Indication: MYELODYSPLASTIC SYNDROME
     Dosage: 5 MG, 1 IN 1 D, ORAL, 5  MG, QOD, ORAL
     Route: 048
     Dates: start: 20060222, end: 20060412
  2. REVLIMID [Suspect]
     Indication: MYELODYSPLASTIC SYNDROME
     Dosage: 5 MG, 1 IN 1 D, ORAL, 5  MG, QOD, ORAL
     Route: 048
     Dates: start: 20060413
  3. TYLENOL PM (TYLENOL PM) [Concomitant]
  4. CALTRACE (CALCIUM CARBONATE) [Concomitant]
  5. MYCELEX [Concomitant]
  6. COLACE (DOCUSATE SODIUM) [Concomitant]
  7. FOLIC ACID [Concomitant]
  8. MIRALAX [Concomitant]
  9. MULTIVITAMIN [Concomitant]
  10. INDERAL [Concomitant]

REACTIONS (7)
  - DISEASE PROGRESSION [None]
  - EPISTAXIS [None]
  - LYMPHOMA [None]
  - MYELODYSPLASTIC SYNDROME [None]
  - NEUROPATHY [None]
  - PANCYTOPENIA [None]
  - RECURRENT CANCER [None]
